FAERS Safety Report 11214744 (Version 1)
Quarter: 2015Q2

REPORT INFORMATION
  Report Type: Spontaneous
  Country: US (occurrence: None)
  Receive Date: 20150622
  Receipt Date: 20150622
  Transmission Date: 20150821
  Serious: Yes (Hospitalization)
  Sender: FDA-Public Use
  Company Number: None

PATIENT
  Age: 51 Year
  Sex: Female

DRUGS (2)
  1. NORETHINDRONE. [Concomitant]
     Active Substance: NORETHINDRONE
  2. LUPANETA PACK [Suspect]
     Active Substance: ISOPROPYL ALCOHOL\LEUPROLIDE ACETATE\NORETHINDRONE ACETATE
     Route: 030
     Dates: start: 20150317

REACTIONS (2)
  - Thrombosis [None]
  - Dyspnoea [None]

NARRATIVE: CASE EVENT DATE: 20150610
